FAERS Safety Report 21054142 (Version 6)
Quarter: 2023Q1

REPORT INFORMATION
  Report Type: Report from Study
  Country: US (occurrence: US)
  Receive Date: 20220707
  Receipt Date: 20230216
  Transmission Date: 20230417
  Serious: Yes (Life-Threatening, Other)
  Sender: FDA-Public Use
  Company Number: US-OTSUKA-2022_002557

PATIENT
  Sex: Female
  Weight: 51.26 kg

DRUGS (4)
  1. TOLVAPTAN [Suspect]
     Active Substance: TOLVAPTAN
     Indication: Congenital cystic kidney disease
     Dosage: 45 MG, QD (UPON WAKING)
     Route: 048
     Dates: start: 20211212
  2. TOLVAPTAN [Suspect]
     Active Substance: TOLVAPTAN
     Indication: Congenital cystic kidney disease
     Dosage: 15 MG, QD (8 HOURS LATER )
     Route: 048
     Dates: start: 20211212
  3. TOLVAPTAN [Suspect]
     Active Substance: TOLVAPTAN
     Dosage: 45 MG, QD (UPON WAKING)
     Route: 048
     Dates: start: 202208, end: 202211
  4. TOLVAPTAN [Suspect]
     Active Substance: TOLVAPTAN
     Dosage: 15 MG, QD (8 HOURS LATER)
     Route: 048
     Dates: start: 202208, end: 202211

REACTIONS (6)
  - Liver injury [Unknown]
  - Alanine aminotransferase decreased [Recovered/Resolved]
  - Dysphonia [Unknown]
  - Liver function test increased [Recovered/Resolved]
  - Product dose omission issue [Unknown]
  - Product availability issue [Unknown]
